FAERS Safety Report 6789887-5 (Version None)
Quarter: 2010Q2

REPORT INFORMATION
  Report Type: 
  Country: None (occurrence: None)
  Receive Date: 20100624
  Receipt Date: 20100621
  Transmission Date: 20101027
  Serious: Yes (Death)
  Sender: FDA-Public Use
  Company Number: ES-JNJFOC-20100606012

PATIENT
  Age: 76 Year
  Sex: Female

DRUGS (11)
  1. TAVANIC [Suspect]
     Indication: SINUSITIS
     Route: 048
  2. PLAVIX [Interacting]
     Indication: CEREBRAL INFARCTION
     Route: 048
  3. SEROXAT SMITH KLINE BEECHAM [Suspect]
     Indication: DRUG USE FOR UNKNOWN INDICATION
     Route: 065
  4. CARDURA [Suspect]
     Indication: DRUG USE FOR UNKNOWN INDICATION
     Route: 065
  5. ALISKIREN [Concomitant]
     Route: 065
  6. ACREL [Concomitant]
     Route: 065
  7. SUTRIL [Concomitant]
     Route: 065
  8. ATENOLOL [Concomitant]
     Route: 065
  9. URAPLEX [Concomitant]
     Route: 065
  10. ZARATOR [Concomitant]
     Route: 065
  11. IDEOS [Concomitant]
     Route: 065

REACTIONS (2)
  - DRUG INTERACTION [None]
  - SUBARACHNOID HAEMORRHAGE [None]
